FAERS Safety Report 6411116-2 (Version None)
Quarter: 2009Q4

REPORT INFORMATION
  Report Type: 
  Country: None (occurrence: None)
  Receive Date: 20091022
  Receipt Date: 20091012
  Transmission Date: 20100525
  Serious: Yes (Other)
  Sender: FDA-Public Use
  Company Number: US-PFIZER INC-2009283651

PATIENT
  Sex: Female
  Weight: 78.005 kg

DRUGS (2)
  1. CHANTIX [Suspect]
     Indication: SMOKING CESSATION THERAPY
     Route: 048
  2. LOTENSIN [Concomitant]
     Dosage: UNK

REACTIONS (2)
  - SURGERY [None]
  - VOMITING [None]
